FAERS Safety Report 7536546-7 (Version None)
Quarter: 2011Q2

REPORT INFORMATION
  Report Type: 
  Country: None (occurrence: None)
  Receive Date: 20110608
  Receipt Date: 20110608
  Transmission Date: 20111010
  Serious: Yes (Hospitalization)
  Sender: FDA-Public Use
  Company Number: None

PATIENT
  Sex: Male
  Weight: 40.6 kg

DRUGS (5)
  1. DEXAMETHASONE [Suspect]
     Dosage: 3.75 MG
  2. ONCASPAR [Suspect]
     Dosage: 3050 IU
  3. CYTARABINE [Suspect]
     Dosage: 70 MG
  4. VINCRISTINE SULFATE [Suspect]
     Dosage: 1.8 MG
  5. METHOTREXATE [Suspect]
     Dosage: 12 MG

REACTIONS (6)
  - PERITONEAL ABSCESS [None]
  - KLEBSIELLA TEST POSITIVE [None]
  - ENTEROCOCCUS TEST POSITIVE [None]
  - LARGE INTESTINE PERFORATION [None]
  - STAPHYLOCOCCUS TEST POSITIVE [None]
  - PERITONEAL INFECTION [None]
